FAERS Safety Report 9009007 (Version 2)
Quarter: 2013Q1

REPORT INFORMATION
  Report Type: Spontaneous
  Country: CL (occurrence: CL)
  Receive Date: 20130111
  Receipt Date: 20130220
  Transmission Date: 20140127
  Serious: Yes (Other)
  Sender: FDA-Public Use
  Company Number: CL-PFIZER INC-2013013056

PATIENT
  Age: 40 Year
  Sex: Female

DRUGS (6)
  1. ZELDOX [Suspect]
     Dosage: 20 MG, 5X/DAY
     Dates: start: 201201
  2. LYRICA [Suspect]
     Dosage: 300 MG, SINGLE
     Dates: start: 20120108
  3. LAMOTRIGINE [Concomitant]
     Dosage: 400 MG/DAY
  4. DORMONID [Concomitant]
     Dosage: 15 MG 2 UNITS PER NIGHT
  5. LORAZEPAM [Concomitant]
     Dosage: 2 MG, UNK
  6. CLONAZEPAM [Concomitant]
     Dosage: 2 MG 2 UNITS PER NIGHT

REACTIONS (1)
  - Suicide attempt [Not Recovered/Not Resolved]
